FAERS Safety Report 8996212 (Version 1)
Quarter: 2013Q1

REPORT INFORMATION
  Report Type: Spontaneous
  Country: JP (occurrence: JP)
  Receive Date: 20130103
  Receipt Date: 20130103
  Transmission Date: 20140127
  Serious: Yes (Hospitalization)
  Sender: FDA-Public Use
  Company Number: JP-B.I. PHARMACEUTICALS,INC./RIDGEFIELD-2012-BI-03873GD

PATIENT
  Age: 81 Year
  Sex: Female

DRUGS (8)
  1. AMANTADINE [Suspect]
     Indication: PARKINSON^S DISEASE
     Dosage: 300 MG
  2. PRAMIPEXOLE [Suspect]
     Indication: PARKINSON^S DISEASE
     Dosage: 0.75 MG
     Dates: start: 2012
  3. PRAMIPEXOLE [Suspect]
     Indication: WHEEZING
     Dosage: 1.5 MG
  4. L-DOPA [Suspect]
     Indication: PARKINSON^S DISEASE
     Dosage: 400 MG
  5. UNSPECIFIED INGREDIENT [Suspect]
     Indication: PARKINSON^S DISEASE
     Dosage: 2.5 MG
  6. DONEPEZIL [Concomitant]
     Dosage: 5 MG
  7. ZONISAMIDE [Concomitant]
     Dosage: 25 MG
  8. ANTI-ASTHMA MEDICATION [Concomitant]
     Indication: ASTHMA
     Dates: start: 2012

REACTIONS (4)
  - Delirium [Unknown]
  - Wheezing [Unknown]
  - Asthma [None]
  - Spasmodic dysphonia [None]
